FAERS Safety Report 17923921 (Version 1)
Quarter: 2020Q2

REPORT INFORMATION
  Report Type: Spontaneous
  Country: CA (occurrence: CA)
  Receive Date: 20200622
  Receipt Date: 20200622
  Transmission Date: 20200714
  Serious: Yes (Other)
  Sender: FDA-Public Use
  Company Number: CA-TEVA-2020-CA-1790431

PATIENT
  Sex: Female

DRUGS (1)
  1. TEVA SALBUTAMOL HFA [Suspect]
     Active Substance: ALBUTEROL SULFATE

REACTIONS (9)
  - Throat irritation [Recovering/Resolving]
  - Dry throat [Recovering/Resolving]
  - Oropharyngeal pain [Recovering/Resolving]
  - Oral discomfort [Recovering/Resolving]
  - Suspected product quality issue [Unknown]
  - Dry mouth [Recovering/Resolving]
  - Oral pain [Recovering/Resolving]
  - Pruritus [Recovering/Resolving]
  - Throat tightness [Recovering/Resolving]
